FAERS Safety Report 7601248-5 (Version None)
Quarter: 2011Q3

REPORT INFORMATION
  Report Type: 
  Country: None (occurrence: None)
  Receive Date: 20110711
  Receipt Date: 20110701
  Transmission Date: 20111222
  Serious: Yes (Hospitalization)
  Sender: FDA-Public Use
  Company Number: US-ASTRAZENECA-2011SE40056

PATIENT
  Age: 65 Year
  Sex: Female

DRUGS (1)
  1. NEXIUM [Suspect]
     Route: 048

REACTIONS (7)
  - MUSCLE SPASMS [None]
  - ASTHENIA [None]
  - SWOLLEN TONGUE [None]
  - TONGUE BITING [None]
  - EYE MOVEMENT DISORDER [None]
  - TRISMUS [None]
  - MUSCULAR WEAKNESS [None]
